FAERS Safety Report 7760671-9 (Version None)
Quarter: 2011Q3

REPORT INFORMATION
  Report Type: 
  Country: None (occurrence: None)
  Receive Date: 20110919
  Receipt Date: 20110223
  Transmission Date: 20111222
  Serious: No
  Sender: FDA-Public Use
  Company Number: US-BAYER-2011-017939

PATIENT
  Age: 56 Year
  Sex: Female

DRUGS (3)
  1. ULTRAVIST 150 [Suspect]
     Indication: COMPUTERISED TOMOGRAM
     Dosage: 80 ML, UNK
     Route: 042
  2. PREMARIN [Concomitant]
  3. RANITIDINE [Concomitant]

REACTIONS (1)
  - URTICARIA [None]
